FAERS Safety Report 4865843-9 (Version None)
Quarter: 2005Q4

REPORT INFORMATION
  Report Type: 
  Country: None (occurrence: None)
  Receive Date: 20051220
  Receipt Date: 20051215
  Transmission Date: 20060501
  Serious: Yes (Disabling)
  Sender: FDA-Public Use
  Company Number: TAP2005Q02056

PATIENT
  Age: 53 Year
  Sex: Female

DRUGS (2)
  1. LUPRON DEPOT-3 [Suspect]
     Indication: UTERINE HAEMORRHAGE
     Dosage: 3.75 MG, 1 IN 1 M, INTRAMUSCULAR
     Route: 030
     Dates: start: 20041201, end: 20050119
  2. WARFARIN (WARFARIN) [Concomitant]

REACTIONS (12)
  - CRYING [None]
  - DYSGEUSIA [None]
  - HEADACHE [None]
  - HYPOAESTHESIA [None]
  - MUSCLE SPASMS [None]
  - NERVOUSNESS [None]
  - NEUROLOGICAL SYMPTOM [None]
  - PAROSMIA [None]
  - PHOTOSENSITIVITY REACTION [None]
  - TREMOR [None]
  - VISUAL DISTURBANCE [None]
  - WOUND INFECTION [None]
